FAERS Safety Report 7712908-X (Version None)
Quarter: 2011Q3

REPORT INFORMATION
  Report Type: 
  Country: None (occurrence: None)
  Receive Date: 20110826
  Receipt Date: 20110822
  Transmission Date: 20111222
  Serious: Yes (Other)
  Sender: FDA-Public Use
  Company Number: PHHY2011US03472

PATIENT
  Sex: Female

DRUGS (10)
  1. EXTAVIA [Suspect]
     Indication: MULTIPLE SCLEROSIS
     Dosage: 0.25 MG, QOD
     Route: 058
     Dates: start: 20101118
  2. PROZAC [Concomitant]
     Dosage: UNK UKN, UNK
  3. METOPROLOL [Concomitant]
     Dosage: UNK UKN, UNK
  4. VIACTIV [Concomitant]
     Dosage: UNK UKN, UNK
  5. VITAMIN B-12 [Concomitant]
     Dosage: UNK UKN, UNK
  6. AVALIDE [Concomitant]
     Dosage: UNK UKN, UNK
  7. POTASSIUM CHLORIDE [Concomitant]
     Dosage: UNK UKN, UNK
  8. FUROSEMIDE [Concomitant]
     Dosage: UNK UKN, UNK
  9. ASPIRIN [Concomitant]
     Dosage: UNK UKN, UNK
  10. VESICARE [Concomitant]
     Dosage: UNK UKN, UNK

REACTIONS (6)
  - INJECTION SITE REACTION [None]
  - CENTRAL NERVOUS SYSTEM LESION [None]
  - ANTIBODY TEST POSITIVE [None]
  - INJECTION SITE SWELLING [None]
  - COGNITIVE DISORDER [None]
  - INJECTION SITE HAEMATOMA [None]
